FAERS Safety Report 10168356 (Version 2)
Quarter: 2015Q2

REPORT INFORMATION
  Report Type: Spontaneous
  Country: PR (occurrence: PR)
  Receive Date: 20140513
  Receipt Date: 20150512
  Transmission Date: 20150821
  Serious: Yes (Hospitalization)
  Sender: FDA-Public Use
  Company Number: PHHY2014PR055131

PATIENT
  Age: 22 Year
  Sex: Female

DRUGS (1)
  1. SULFAMETHOXAZOLE AND TRIMETHOPRIM [Suspect]
     Active Substance: SULFAMETHOXAZOLE\TRIMETHOPRIM
     Indication: URINARY TRACT INFECTION
     Route: 048

REACTIONS (19)
  - Drug reaction with eosinophilia and systemic symptoms [Unknown]
  - Eye pruritus [Unknown]
  - Malaise [Unknown]
  - Papule [Unknown]
  - Retinal haemorrhage [Recovered/Resolved]
  - Leukocytosis [Unknown]
  - Scab [Unknown]
  - Rash [Unknown]
  - Skin hyperpigmentation [Unknown]
  - Mucosal ulceration [Unknown]
  - Lip swelling [Recovering/Resolving]
  - Eosinophilia [Unknown]
  - Ocular hyperaemia [Recovering/Resolving]
  - Eyelid oedema [Unknown]
  - Vision blurred [Not Recovered/Not Resolved]
  - Photophobia [Unknown]
  - Skin lesion [Recovering/Resolving]
  - Vitritis [Recovered/Resolved]
  - Skin plaque [Unknown]
